FAERS Safety Report 6045204-X (Version None)
Quarter: 2009Q1

REPORT INFORMATION
  Report Type: 
  Country: None (occurrence: None)
  Receive Date: 20090121
  Receipt Date: 20090109
  Transmission Date: 20090719
  Serious: Yes (Hospitalization)
  Sender: FDA-Public Use
  Company Number: US-ROCHE-607193

PATIENT
  Sex: Male
  Weight: 110.3 kg

DRUGS (3)
  1. PEG-INTERFERON ALFA 2A (RO 25-8310) [Suspect]
     Indication: HEPATITIS C
     Dosage: PERMANENTLY DISCONTINUED.
     Route: 065
     Dates: end: 20090109
  2. RIBAVIRIN [Suspect]
     Indication: HEPATITIS C
     Dosage: PERMANENTLY DISCONTINUED.
     Route: 065
     Dates: end: 20090109
  3. BLINDED NITAZOXANIDE [Suspect]
     Indication: HEPATITIS C
     Dosage: PERMANENTLY DISCONTINUED.
     Route: 065
     Dates: start: 20080825, end: 20090109

REACTIONS (2)
  - CONFUSIONAL STATE [None]
  - MENTAL STATUS CHANGES [None]
